FAERS Safety Report 5676974-8 (Version None)
Quarter: 2008Q1

REPORT INFORMATION
  Report Type: 
  Country: None (occurrence: None)
  Receive Date: 20080324
  Receipt Date: 20080311
  Transmission Date: 20080703
  Serious: Yes (Hospitalization, Other)
  Sender: FDA-Public Use
  Company Number: DE-ROCHE-506616

PATIENT
  Age: 70 Year
  Sex: Female
  Weight: 69 kg

DRUGS (21)
  1. IBANDRONIC ACID [Suspect]
     Indication: PROPHYLAXIS
     Dosage: FREQUENCY 1-0-0
     Route: 048
     Dates: start: 20041101, end: 20071108
  2. CAPECITABINE [Suspect]
     Indication: BREAST CANCER
     Dosage: DAYS 1-14 OUT OF 21.
     Route: 048
     Dates: start: 20070620
  3. CAPECITABINE [Suspect]
     Route: 048
     Dates: start: 20070501, end: 20071101
  4. CAPECITABINE [Suspect]
     Dosage: FREQUENCY 1-14 D/D21/127
     Route: 048
     Dates: start: 20071014, end: 20071018
  5. ZOMETA [Suspect]
     Indication: DRUG USE FOR UNKNOWN INDICATION
     Route: 065
     Dates: start: 20040301, end: 20041101
  6. SAROTEN [Concomitant]
     Indication: DEPRESSION
  7. SAROTEN [Concomitant]
     Dosage: FREQUENCY 0-0-1/2
     Dates: end: 20071113
  8. RAMIPRIL [Concomitant]
     Indication: HYPERTENSION
     Dates: end: 20071106
  9. 1 CONCOMITANT DRUG [Concomitant]
     Indication: HYPERTENSION
     Dosage: NAME REPORTED AS: METO-ISIS.
     Dates: end: 20071108
  10. GLUCOPHAGE [Concomitant]
     Indication: DIABETES MELLITUS
     Dates: end: 20071112
  11. 1 CONCOMITANT DRUG [Concomitant]
     Indication: DIABETES MELLITUS
  12. BELOC-ZOK [Concomitant]
     Indication: HYPERTENSION
     Dosage: FREQUENCY 1-0-0
     Dates: start: 20071109
  13. 1 CONCOMITANT DRUG [Concomitant]
     Dosage: FREQENCY 0-1-1
  14. GABAPENTIN [Concomitant]
     Indication: PAIN
     Dosage: FREQUENCY 1-0-2
  15. CIPRAMIL [Concomitant]
     Indication: DEPRESSION
     Dosage: FREQUENCY 1-0-0
     Dates: start: 20071114
  16. 1 CONCOMITANT DRUG [Concomitant]
     Dosage: DRUG NAME VALZIUM BRAUSE, FREQUENCY 1-0-1
  17. 1 CONCOMITANT DRUG [Concomitant]
     Dosage: DRUG NAME VALIMOR BRAUSE FREQUENCY 1-0-1
  18. IBUPROFEN [Concomitant]
     Indication: PAIN
     Dosage: FREQUENCY 1-0-1
     Dates: end: 20071108
  19. CIPRO [Concomitant]
     Dosage: FREQUENCY 1-0-1
     Dates: start: 20071106, end: 20071108
  20. ARIMIDEX [Concomitant]
     Dates: start: 20040301, end: 20041101
  21. TAMOXIFEN CITRATE [Concomitant]
     Dates: start: 20051101, end: 20060701

REACTIONS (7)
  - ANAEMIA [None]
  - BONE PAIN [None]
  - DEHYDRATION [None]
  - LEUKOPENIA [None]
  - OSTEONECROSIS [None]
  - RENAL FAILURE [None]
  - RENAL FAILURE ACUTE [None]
